FAERS Safety Report 25292184 (Version 3)
Quarter: 2025Q2

REPORT INFORMATION
  Report Type: Spontaneous
  Country: US (occurrence: US)
  Receive Date: 20250510
  Receipt Date: 20250513
  Transmission Date: 20250717
  Serious: No
  Sender: SANOFI AVENTIS
  Company Number: US-SANOFI-02499526

PATIENT
  Age: 13 Year
  Sex: Male
  Weight: 36 kg

DRUGS (2)
  1. DUPIXENT [Suspect]
     Active Substance: DUPILUMAB
     Indication: Dermatitis atopic
     Dosage: 200 MG, QOW
     Route: 058
     Dates: start: 202311
  2. EPINEPHRINE [Concomitant]
     Active Substance: EPINEPHRINE

REACTIONS (3)
  - Rash macular [Unknown]
  - Skin exfoliation [Unknown]
  - Injection site pain [Unknown]

NARRATIVE: CASE EVENT DATE: 20250423
